FAERS Safety Report 25961163 (Version 1)
Quarter: 2025Q4

REPORT INFORMATION
  Report Type: Report from Study
  Country: US (occurrence: US)
  Receive Date: 20251027
  Receipt Date: 20251027
  Transmission Date: 20260118
  Serious: Yes (Other)
  Sender: ABBVIE
  Company Number: US-ABBVIE-6516485

PATIENT
  Sex: Male

DRUGS (1)
  1. RINVOQ [Suspect]
     Active Substance: UPADACITINIB
     Indication: Dermatitis atopic
     Route: 048
     Dates: start: 20241220

REACTIONS (5)
  - Hip arthroplasty [Unknown]
  - Bacterial infection [Unknown]
  - Pain [Unknown]
  - Localised infection [Unknown]
  - Cyst [Unknown]
